FAERS Safety Report 4391334-8 (Version None)
Quarter: 2004Q2

REPORT INFORMATION
  Report Type: 
  Country: None (occurrence: None)
  Receive Date: 20040621
  Receipt Date: 20031104
  Transmission Date: 20050107
  Serious: Yes (Hospitalization)
  Sender: FDA-Public Use
  Company Number: USA-2003-0010642

PATIENT
  Age: 47 Year
  Sex: Male

DRUGS (1)
  1. OXYCONTIN [Suspect]
     Indication: PAIN
     Dosage: 20 MG, Q12

REACTIONS (3)
  - COMA [None]
  - OVERDOSE [None]
  - RESPIRATORY FAILURE [None]
